FAERS Safety Report 16113420 (Version 1)
Quarter: 2019Q1

REPORT INFORMATION
  Report Type: Spontaneous
  Country: US (occurrence: US)
  Receive Date: 20190325
  Receipt Date: 20190325
  Transmission Date: 20190418
  Serious: No
  Sender: FDA-Public Use
  Company Number: US-PFIZER INC-2019121872

PATIENT
  Age: 55 Year
  Sex: Male
  Weight: 116.5 kg

DRUGS (1)
  1. VIAGRA [Suspect]
     Active Substance: SILDENAFIL CITRATE
     Indication: ERECTILE DYSFUNCTION
     Dosage: 100 MG, DAILY (TAKE 1 TABLET EVERYDAY BY ORAL ROUTE FOR 30 DAYS)
     Route: 048

REACTIONS (1)
  - Drug effect incomplete [Unknown]
